FAERS Safety Report 9404430 (Version 1)
Quarter: 2013Q3

REPORT INFORMATION
  Report Type: Spontaneous
  Country: US (occurrence: None)
  Receive Date: 20130711
  Receipt Date: 20130711
  Transmission Date: 20140515
  Serious: Yes (Death)
  Sender: FDA-Public Use
  Company Number: 2013STPI000266

PATIENT
  Age: 51 Year
  Sex: Female
  Weight: 77.1 kg

DRUGS (40)
  1. MATULANE (PROCARBAZINE HYDROCHLORIDE) CAPSULE, 50MG [Suspect]
     Indication: HODGKIN^S DISEASE
     Route: 048
     Dates: end: 2013
  2. EMEND (APREPITANT) [Concomitant]
  3. PANTOPRAZOLE SODIUM (PANTOPRAZOLE SODIUM SESQUIHYDRATE) [Concomitant]
  4. FLAGYL (METRONIDAZOLE) [Concomitant]
  5. PREDNISONE (PREDNISONE) [Concomitant]
  6. CLARITIN (LORATADINE) [Concomitant]
  7. TEGRETOL (CARBAMAZEPINE) UNKNOWN [Concomitant]
  8. NITRO-DUR (GLYCERYL TRINITRATE) [Concomitant]
  9. DILTIAZEM (DILTIAZEM HYDROCHLORIDE) [Concomitant]
  10. METROCLOPRAMIDE HYDROCHLORIDE (METROCLOPRAMIDE HYDROCHLORIDE) [Concomitant]
  11. CELEXA (CITALOPRAM HYDROBROMIDE) [Concomitant]
  12. PRAVASTATIN SODIUM (PRAVASTATIN SODIUM) [Concomitant]
  13. ZOFRAN (ONDANSETRON HYDROCHLORIDE) [Concomitant]
  14. MELOXICAM (MELOXICAM) [Concomitant]
  15. PROCHLORPERAZINE EDISYLATE (PROCHLORPERAZINE EDISYLATE) [Concomitant]
  16. LISINOPRIL (LISINOPRIL) [Concomitant]
  17. PHENOBARBITAL (PHENOBARBITAL) [Concomitant]
  18. TRIAMCINOLONE CREAM (TRIAMCINOLONE CREAM) [Concomitant]
  19. ZANTAC (RANITIDINE HYDROCHLORIDE) [Concomitant]
  20. DIFLUCAN (FLUCONAZOLE) [Concomitant]
  21. CLOBEX 0.05% SHAMPOO (CLOBETASOL PROPIONATE) [Concomitant]
  22. CLOBEX LOTION (CLOBETASOL PROPIONATE) [Concomitant]
  23. FLUTICASONE PROPIONATE (FLUTICASONE PROPIONATE) [Concomitant]
  24. ALLOPURINOL [Concomitant]
  25. DIPHENOXYLATE HCL AND ATROPINE SULFATE (ATROPINE SULFATE, DIPHENOXYLATE HYDROCHLORIDE) [Concomitant]
  26. LEVOTHYROXINE SODIUM (LEVOTHYROXINE SODIUM) [Concomitant]
  27. TRIAMTERENE AND HYDROCLOROTHIAZIDE (HYDROCHLOROTHIAZIDE, TRIAMTERENE) [Concomitant]
  28. COUMADIN (WARFARIN SODIUM) [Concomitant]
  29. COMBIVENT (IPRATROPIUM BROMIDE, SALBUTAMOL SULFATE) [Concomitant]
  30. VINCRISTINE SULFATE (VINCRISTINE SULFATE) [Concomitant]
  31. CYCLOPHOSPHAMIDE (CYCLOPHOSPHAMIDE) [Concomitant]
  32. KETOCONAZOLE GSMS (KETOCONAZOLE) [Concomitant]
  33. BAYER ASPIRIN (ACETYLSALICYLIC ACID) [Concomitant]
  34. OXYCONTIN (OXYCODONE HYDROCHLORIDE) [Concomitant]
  35. BETAPACE (SOTALOL HYDROCHLORIDE) [Concomitant]
  36. PROBIOTIC ACIDOPHILUS (LACTOBACILLUS ACIDOPHILUS) [Concomitant]
  37. NITROGLYCERIN (GLYCERYL TRINITRATE) [Concomitant]
  38. VANCOMYCIN HCL (VANCOMYCIN HYDROCHLORIDE) [Concomitant]
  39. RANEXA (RANOLAZINE) [Concomitant]
  40. VERAMYST (FLUTICASONE FUROATE) [Concomitant]

REACTIONS (1)
  - Death [None]
